FAERS Safety Report 5762260-4 (Version None)
Quarter: 2008Q2

REPORT INFORMATION
  Report Type: 
  Country: None (occurrence: None)
  Receive Date: 20080609
  Receipt Date: 20080530
  Transmission Date: 20081010
  Serious: Yes (Hospitalization)
  Sender: FDA-Public Use
  Company Number: DE-ELI_LILLY_AND_COMPANY-DE200806000090

PATIENT
  Sex: Female

DRUGS (3)
  1. ZYPREXA [Suspect]
     Indication: DEPRESSION
     Dosage: 20 MG, DAILY (1/D)
     Route: 048
     Dates: start: 20050101, end: 20080523
  2. AMITRIPTYLINE HCL [Concomitant]
     Dosage: 75 MG, UNK
     Route: 048
  3. PAROXETINE HCL [Concomitant]
     Dosage: UNK, UNK
     Route: 048
     Dates: start: 20080509, end: 20080509

REACTIONS (9)
  - AGITATION [None]
  - CONFUSIONAL STATE [None]
  - CONVULSION [None]
  - DISTURBANCE IN ATTENTION [None]
  - HYPONATRAEMIA [None]
  - OFF LABEL USE [None]
  - POISONING [None]
  - RESTLESSNESS [None]
  - RETROGRADE AMNESIA [None]
